FAERS Safety Report 9319001 (Version 1)
Quarter: 2013Q2

REPORT INFORMATION
  Report Type: Spontaneous
  Country: US (occurrence: US)
  Receive Date: 20130530
  Receipt Date: 20130530
  Transmission Date: 20140414
  Serious: No
  Sender: FDA-Public Use
  Company Number: US-NOVEN-13US005983

PATIENT
  Age: 8 Year
  Sex: Male
  Weight: 36.28 kg

DRUGS (5)
  1. DAYTRANA [Suspect]
     Indication: ATTENTION DEFICIT/HYPERACTIVITY DISORDER
     Dosage: 3 X 10 MG OR 2 X 15 MG
     Route: 062
     Dates: start: 201301
  2. DAYTRANA [Suspect]
     Dosage: 10 MG, UNK
     Route: 062
     Dates: start: 201211, end: 20121210
  3. DAYTRANA [Suspect]
     Dosage: 15 MG, UNK
     Route: 062
     Dates: start: 20121210
  4. DAYTRANA [Suspect]
     Dosage: 2 X 10 MG
     Route: 062
  5. DAYTRANA [Suspect]
     Dosage: 1 X 10 MG AND 1 X 15 MG
     Route: 062
     Dates: end: 201201

REACTIONS (4)
  - Disturbance in social behaviour [Unknown]
  - Drug ineffective [Unknown]
  - Wrong technique in drug usage process [Unknown]
  - Drug prescribing error [Unknown]
